FAERS Safety Report 9419743 (Version 1)
Quarter: 2013Q3

REPORT INFORMATION
  Report Type: Spontaneous
  Country: JP (occurrence: None)
  Receive Date: 20130723
  Receipt Date: 20130723
  Transmission Date: 20140515
  Serious: Yes (Other)
  Sender: FDA-Public Use
  Company Number: DSJ-2013-15920

PATIENT
  Age: 67 Year
  Sex: Male

DRUGS (2)
  1. OLMETEC [Suspect]
     Indication: PRODUCT USED FOR UNKNOWN INDICATION
     Dosage: UNKNOWN, PER ORAL
     Route: 048
     Dates: start: 2007
  2. ARGAMATE (CALCIUM POLYSTYRENE SULFONATE) (CALCIUM POLYSTYRENE SULFONATE) [Concomitant]

REACTIONS (1)
  - Diabetic nephropathy [None]
